FAERS Safety Report 6634482-1 (Version None)
Quarter: 2010Q1

REPORT INFORMATION
  Report Type: 
  Country: None (occurrence: None)
  Receive Date: 20100315
  Receipt Date: 20100308
  Transmission Date: 20100710
  Serious: Yes (Death, Other)
  Sender: FDA-Public Use
  Company Number: FI-ROCHE-689687

PATIENT
  Age: 56 Year
  Sex: Female

DRUGS (3)
  1. XELODA [Suspect]
     Indication: INTESTINAL ADENOCARCINOMA
     Route: 048
     Dates: start: 20041201, end: 20050401
  2. DOCETAXEL [Suspect]
     Indication: INTESTINAL ADENOCARCINOMA
     Route: 065
     Dates: start: 20041201, end: 20050401
  3. CISPLATIN [Suspect]
     Indication: INTESTINAL ADENOCARCINOMA
     Route: 065
     Dates: start: 20041201, end: 20050401

REACTIONS (3)
  - LETHARGY [None]
  - METASTASES TO LIVER [None]
  - VOMITING [None]
